FAERS Safety Report 9846384 (Version 2)
Quarter: 2014Q2

REPORT INFORMATION
  Report Type: Spontaneous
  Country: US (occurrence: None)
  Receive Date: 20131224
  Receipt Date: 20140428
  Transmission Date: 20141212
  Serious: Yes (Other)
  Sender: FDA-Public Use
  Company Number: PHEH2013US023445

PATIENT
  Age: 38 Year
  Sex: Male
  Weight: 107 kg

DRUGS (3)
  1. GILENYA (FINGOLIMOD) CAPSULE, 0.5MG [Suspect]
     Indication: MULTIPLE SCLEROSIS
     Route: 048
     Dates: start: 20130409, end: 20131030
  2. CARVEDILOL [Concomitant]
  3. LISINOPRIL [Concomitant]

REACTIONS (2)
  - Macular oedema [None]
  - Metamorphopsia [None]
